FAERS Safety Report 9081270 (Version 1)
Quarter: 2013Q1

REPORT INFORMATION
  Report Type: Report from Study
  Country: US (occurrence: US)
  Receive Date: 20130130
  Receipt Date: 20130130
  Transmission Date: 20140127
  Serious: No
  Sender: FDA-Public Use
  Company Number: US-ABBOTT-12P-163-0957602-00

PATIENT
  Age: 50 Year
  Sex: Male

DRUGS (2)
  1. HUMIRA 40 MG/0.8 ML PEN [Suspect]
     Indication: PSORIASIS
     Dates: start: 20120606, end: 20120706
  2. HUMIRA 40 MG/0.8 ML PEN [Suspect]
     Dates: start: 20120713, end: 20120713

REACTIONS (4)
  - Ear discomfort [Recovered/Resolved]
  - Hypoacusis [Recovered/Resolved]
  - Cerumen impaction [Recovered/Resolved]
  - Psoriasis [Unknown]
